FAERS Safety Report 12932551 (Version 1)
Quarter: 2016Q4

REPORT INFORMATION
  Report Type: Report from Study
  Country: US (occurrence: US)
  Receive Date: 20161111
  Receipt Date: 20161111
  Transmission Date: 20170207
  Serious: Yes (Death, Hospitalization, Other)
  Sender: FDA-Public Use
  Company Number: US-BAYER-2016-018806

PATIENT
  Age: 83 Year
  Sex: Male
  Weight: 136 kg

DRUGS (19)
  1. ADEMPAS [Suspect]
     Active Substance: RIOCIGUAT
     Indication: PULMONARY HYPERTENSION
     Dosage: 2 MG, TID
     Route: 048
  2. PLAVIX [Concomitant]
     Active Substance: CLOPIDOGREL BISULFATE
     Dosage: 75 MG, QD
  3. NASACORT [Concomitant]
     Active Substance: TRIAMCINOLONE ACETONIDE
     Dosage: 55 MCG/24HR, UNK
  4. LASIX [Concomitant]
     Active Substance: FUROSEMIDE
     Dosage: 40 MG,  TWICE A WEEK
  5. ADEMPAS [Suspect]
     Active Substance: RIOCIGUAT
     Indication: PULMONARY HYPERTENSION
     Dosage: UNK
  6. ADEMPAS [Suspect]
     Active Substance: RIOCIGUAT
     Indication: PULMONARY HYPERTENSION
     Dosage: 2 MG, TID
     Route: 048
  7. ATENOLOL. [Concomitant]
     Active Substance: ATENOLOL
     Dosage: 100 MG, QD
  8. OXYGEN. [Concomitant]
     Active Substance: OXYGEN
  9. VENLAFAXINE HYDROCHLORIDE. [Concomitant]
     Active Substance: VENLAFAXINE HYDROCHLORIDE
     Dosage: 75 MG, QD
  10. ACIPHEX [Concomitant]
     Active Substance: RABEPRAZOLE SODIUM
     Dosage: 20 MG, QD
  11. LISINOPRIL. [Concomitant]
     Active Substance: LISINOPRIL
     Dosage: 20 MG, QD
  12. LYRICA [Concomitant]
     Active Substance: PREGABALIN
     Dosage: 50 MG, BID
  13. ALLEGRA [Concomitant]
     Active Substance: FEXOFENADINE HYDROCHLORIDE
     Dosage: 180 MG, QD
  14. ADEMPAS [Suspect]
     Active Substance: RIOCIGUAT
     Indication: PULMONARY ARTERIAL HYPERTENSION
     Dosage: 0.5 MG, TID (TABLET)
     Route: 048
     Dates: start: 20151208
  15. ADEMPAS [Suspect]
     Active Substance: RIOCIGUAT
     Indication: PULMONARY HYPERTENSION
     Dosage: 1 MG, TID
     Route: 048
  16. ADEMPAS [Suspect]
     Active Substance: RIOCIGUAT
     Indication: PULMONARY HYPERTENSION
     Dosage: 2 MG, TID
     Route: 048
     Dates: start: 20150812
  17. ADEMPAS [Suspect]
     Active Substance: RIOCIGUAT
     Indication: PULMONARY HYPERTENSION
     Dosage: 1 MG, TID
     Route: 048
  18. AMLODIPINE [Concomitant]
     Active Substance: AMLODIPINE BESYLATE
  19. LIVALO [Concomitant]
     Active Substance: PITAVASTATIN CALCIUM
     Dosage: 02 MG, QD

REACTIONS (29)
  - Pulmonary arterial hypertension [None]
  - Cardiac failure congestive [None]
  - Drug ineffective [None]
  - Dyspnoea [None]
  - Dyspnoea [Recovering/Resolving]
  - Pleural effusion [Unknown]
  - Oxygen supplementation [None]
  - Oedema peripheral [Not Recovered/Not Resolved]
  - Peripheral swelling [Recovering/Resolving]
  - Pulmonary oedema [None]
  - Dyspnoea [None]
  - Interstitial lung disease [None]
  - Hypoxia [None]
  - Dizziness [Unknown]
  - Hypotension [Recovered/Resolved]
  - Pleural effusion [None]
  - Asthma-chronic obstructive pulmonary disease overlap syndrome [None]
  - Restrictive pulmonary disease [None]
  - Insomnia [None]
  - Oedema peripheral [None]
  - Sleep apnoea syndrome [None]
  - Death [Fatal]
  - Malaise [None]
  - Oxygen consumption increased [None]
  - Chronic obstructive pulmonary disease [None]
  - Malaise [None]
  - Oxygen saturation decreased [None]
  - Weight increased [None]
  - Hypotension [None]

NARRATIVE: CASE EVENT DATE: 201607
